FAERS Safety Report 20066275 (Version 1)
Quarter: 2021Q4

REPORT INFORMATION
  Report Type: Spontaneous
  Country: US (occurrence: US)
  Receive Date: 20211114
  Receipt Date: 20211114
  Transmission Date: 20220303
  Serious: Yes (Death, Other)
  Sender: FDA-Public Use
  Company Number: US-BAUSCH-BL-2021-037159

PATIENT
  Age: 81 Year
  Sex: Male

DRUGS (1)
  1. XIFAXAN [Suspect]
     Active Substance: RIFAXIMIN
     Indication: Liver disorder
     Route: 065
     Dates: end: 20210711

REACTIONS (5)
  - Neoplasm malignant [Fatal]
  - Hepatic failure [Fatal]
  - Respiratory failure [Fatal]
  - Cardiac failure [Fatal]
  - Hospice care [Unknown]
